FAERS Safety Report 8134103-5 (Version None)
Quarter: 2012Q1

REPORT INFORMATION
  Report Type: 
  Country: None (occurrence: None)
  Receive Date: 20120214
  Receipt Date: 20120203
  Transmission Date: 20120608
  Serious: No
  Sender: FDA-Public Use
  Company Number: US-BIOGENIDEC-2012BI004420

PATIENT
  Age: 37 Year
  Sex: Female

DRUGS (1)
  1. AVONEX [Suspect]
     Indication: MULTIPLE SCLEROSIS
     Route: 030
     Dates: start: 20111107

REACTIONS (8)
  - VOMITING [None]
  - VERTIGO [None]
  - MYALGIA [None]
  - INFLUENZA LIKE ILLNESS [None]
  - HEADACHE [None]
  - URINARY TRACT INFECTION [None]
  - MOBILITY DECREASED [None]
  - PHOTOSENSITIVITY REACTION [None]
